FAERS Safety Report 25509807 (Version 2)
Quarter: 2025Q3

REPORT INFORMATION
  Report Type: Report from Study
  Country: EC (occurrence: EC)
  Receive Date: 20250703
  Receipt Date: 20250707
  Transmission Date: 20251021
  Serious: Yes (Death, Hospitalization)
  Sender: NOVARTIS
  Company Number: EC-002147023-NVSC2025EC105032

PATIENT
  Sex: Female

DRUGS (2)
  1. KISQALI [Suspect]
     Active Substance: RIBOCICLIB SUCCINATE
     Indication: Breast cancer
     Dosage: 400 MG, QD
     Route: 048
     Dates: start: 20250526
  2. KISQALI [Suspect]
     Active Substance: RIBOCICLIB SUCCINATE
     Indication: Breast cancer metastatic

REACTIONS (2)
  - Sepsis [Fatal]
  - Infection [Not Recovered/Not Resolved]
